FAERS Safety Report 10232298 (Version 2)
Quarter: 2014Q2

REPORT INFORMATION
  Report Type: Spontaneous
  Country: RS (occurrence: RS)
  Receive Date: 20140612
  Receipt Date: 20140618
  Transmission Date: 20141212
  Serious: Yes (Other)
  Sender: FDA-Public Use
  Company Number: RS-ORION CORPORATION ORION PHARMA-ENT 2014-0089

PATIENT
  Age: 70 Year
  Sex: Female

DRUGS (5)
  1. COMTAN [Suspect]
     Indication: PARKINSON^S DISEASE
     Dosage: STRENGTH: 200 MG
     Route: 048
     Dates: start: 20140401
  2. COMTAN [Suspect]
     Dosage: STRENGTH: 200 MG
     Route: 048
  3. COMTAN [Suspect]
     Dosage: STRENGTH: 200 MG
     Route: 048
  4. MADOPAR [Concomitant]
     Route: 065
  5. MADOPAR [Concomitant]
     Route: 065

REACTIONS (1)
  - Nausea [Recovered/Resolved]
